FAERS Safety Report 4497559-5 (Version None)
Quarter: 2004Q4

REPORT INFORMATION
  Report Type: 
  Country: None (occurrence: None)
  Receive Date: 20041104
  Receipt Date: 20041025
  Transmission Date: 20050328
  Serious: Yes (Death)
  Sender: FDA-Public Use
  Company Number: 2004US001300

PATIENT
  Age: 58 Year
  Sex: Male

DRUGS (3)
  1. PROGRAF [Suspect]
     Indication: HEART TRANSPLANT
     Dosage: ORAL; INTRAVENOUS; ORAL
     Dates: start: 20011201
  2. PROGRAF [Suspect]
     Indication: HEART TRANSPLANT
     Dosage: ORAL; INTRAVENOUS; ORAL
     Dates: start: 20011201
  3. MYCOPHENOLATE MOFETIL (MYCOPHENOLATE MOFETIL) [Suspect]
     Indication: HEART TRANSPLANT

REACTIONS (4)
  - ADENOVIRUS INFECTION [None]
  - CLOSTRIDIUM COLITIS [None]
  - DIABETES MELLITUS [None]
  - PNEUMONIA ESCHERICHIA [None]
